FAERS Safety Report 23783389 (Version 1)
Quarter: 2024Q2

REPORT INFORMATION
  Report Type: Spontaneous
  Country: US (occurrence: US)
  Receive Date: 20240425
  Receipt Date: 20240425
  Transmission Date: 20240716
  Serious: Yes (Hospitalization, Other)
  Sender: FDA-Public Use
  Company Number: US-JNJFOC-20240452302

PATIENT

DRUGS (3)
  1. SPORANOX [Suspect]
     Active Substance: ITRACONAZOLE
     Indication: Aspergillus infection
     Dosage: ON DOL 42
     Route: 042
  2. SPORANOX [Suspect]
     Active Substance: ITRACONAZOLE
     Dosage: ON DOL 63
     Route: 042
  3. FLUCONAZOLE [Concomitant]
     Active Substance: FLUCONAZOLE
     Indication: Antifungal prophylaxis
     Dosage: DOL 0
     Route: 042

REACTIONS (4)
  - Bone density decreased [Unknown]
  - Fracture [Unknown]
  - Blood alkaline phosphatase abnormal [Unknown]
  - Hepatic enzyme increased [Unknown]
